FAERS Safety Report 8862409 (Version 3)
Quarter: 2013Q4

REPORT INFORMATION
  Report Type: Report from Study
  Country: CA (occurrence: CA)
  Receive Date: 20121026
  Receipt Date: 20131029
  Transmission Date: 20140711
  Serious: Yes (Hospitalization)
  Sender: FDA-Public Use
  Company Number: CA-JNJFOC-20121007639

PATIENT
  Sex: Female
  Weight: 55.34 kg

DRUGS (5)
  1. REMICADE [Suspect]
     Indication: RHEUMATOID ARTHRITIS
     Route: 042
     Dates: end: 20121011
  2. REMICADE [Suspect]
     Indication: RHEUMATOID ARTHRITIS
     Route: 042
  3. REMICADE [Suspect]
     Indication: RHEUMATOID ARTHRITIS
     Route: 042
  4. REMICADE [Suspect]
     Indication: RHEUMATOID ARTHRITIS
     Dosage: APPROX. 04-AUG-2013
     Route: 042
     Dates: start: 201308
  5. REMICADE [Suspect]
     Indication: RHEUMATOID ARTHRITIS
     Dosage: APPROX. 18-MAR-2013
     Route: 042
     Dates: start: 201303

REACTIONS (2)
  - Necrosis [Recovered/Resolved]
  - Weight fluctuation [Unknown]
